FAERS Safety Report 25091164 (Version 2)
Quarter: 2025Q1

REPORT INFORMATION
  Report Type: Spontaneous
  Country: US (occurrence: US)
  Receive Date: 20250318
  Receipt Date: 20250318
  Transmission Date: 20250408
  Serious: Yes (Death, Other)
  Sender: AMGEN
  Company Number: US-AMGEN-USASP2025050478

PATIENT
  Age: 61 Year
  Sex: Female

DRUGS (16)
  1. RITUXIMAB [Suspect]
     Active Substance: RITUXIMAB
     Indication: Marginal zone lymphoma
     Route: 065
     Dates: start: 2023
  2. METHOTREXATE [Concomitant]
     Active Substance: METHOTREXATE
     Route: 065
  3. LEFLUNOMIDE [Concomitant]
     Active Substance: LEFLUNOMIDE
     Route: 065
  4. MYCOPHENOLIC ACID [Concomitant]
     Active Substance: MYCOPHENOLIC ACID
  5. SULFASALAZINE [Concomitant]
     Active Substance: SULFASALAZINE
     Route: 065
  6. SECUKINUMAB [Concomitant]
     Active Substance: SECUKINUMAB
     Route: 065
  7. ADALIMUMAB [Concomitant]
     Active Substance: ADALIMUMAB
     Route: 065
  8. METHYLPREDNISOLONE [Concomitant]
     Active Substance: METHYLPREDNISOLONE
     Route: 065
  9. OBINUTUZUMAB [Concomitant]
     Active Substance: OBINUTUZUMAB
     Route: 065
  10. BENDAMUSTINE [Concomitant]
     Active Substance: BENDAMUSTINE
     Route: 065
  11. ETOPOSIDE [Concomitant]
     Active Substance: ETOPOSIDE
     Route: 065
  12. UNSPECIFIED INGREDIENT [Concomitant]
     Active Substance: UNSPECIFIED INGREDIENT
     Route: 065
  13. VINCRISTINE [Concomitant]
     Active Substance: VINCRISTINE
     Route: 065
  14. CYCLOPHOSPHAMIDE [Concomitant]
     Active Substance: CYCLOPHOSPHAMIDE
     Route: 065
  15. DOXORUBICIN [Concomitant]
     Active Substance: DOXORUBICIN
     Route: 065
  16. BORTEZOMIB [Concomitant]
     Active Substance: BORTEZOMIB
     Route: 065

REACTIONS (5)
  - Marginal zone lymphoma [Fatal]
  - Upper gastrointestinal haemorrhage [Unknown]
  - Epstein-Barr virus test positive [Unknown]
  - Anaemia macrocytic [Unknown]
  - Drug ineffective [Unknown]

NARRATIVE: CASE EVENT DATE: 20230101
